FAERS Safety Report 12832125 (Version 8)
Quarter: 2016Q4

REPORT INFORMATION
  Report Type: Report from Study
  Country: US (occurrence: US)
  Receive Date: 20161010
  Receipt Date: 20161128
  Transmission Date: 20170207
  Serious: No
  Sender: FDA-Public Use
  Company Number: PHEH2016US025826

PATIENT
  Age: 55 Year
  Sex: Female
  Weight: 56.69 kg

DRUGS (2)
  1. COSENTYX [Suspect]
     Active Substance: SECUKINUMAB
     Dosage: 150 MG, QMO
     Route: 058
     Dates: end: 20161005
  2. COSENTYX [Suspect]
     Active Substance: SECUKINUMAB
     Indication: PRODUCT USED FOR UNKNOWN INDICATION
     Dosage: 150 MG, QW
     Route: 058

REACTIONS (13)
  - Oropharyngeal pain [Not Recovered/Not Resolved]
  - Influenza like illness [Unknown]
  - Arthralgia [Unknown]
  - Nasal congestion [Unknown]
  - Malaise [Unknown]
  - Night sweats [Unknown]
  - Hot flush [Unknown]
  - Condition aggravated [Unknown]
  - Abdominal distension [Unknown]
  - Fatigue [Unknown]
  - Pyrexia [Unknown]
  - Musculoskeletal chest pain [Unknown]
  - Drug interaction [Unknown]

NARRATIVE: CASE EVENT DATE: 20161005
